FAERS Safety Report 6842097-5 (Version None)
Quarter: 2010Q3

REPORT INFORMATION
  Report Type: 
  Country: None (occurrence: None)
  Receive Date: 20100714
  Receipt Date: 20070719
  Transmission Date: 20110219
  Serious: No
  Sender: FDA-Public Use
  Company Number: US-PFIZER INC-2007061298

PATIENT
  Sex: Male
  Weight: 170 kg

DRUGS (5)
  1. CHANTIX [Suspect]
     Indication: SMOKING CESSATION THERAPY
     Route: 048
     Dates: start: 20070709
  2. FELODIPINE [Concomitant]
  3. ATACAND [Concomitant]
  4. CITALOPRAM HYDROBROMIDE [Concomitant]
  5. TOPROL-XL [Concomitant]

REACTIONS (3)
  - FATIGUE [None]
  - SLEEP DISORDER [None]
  - VISUAL ACUITY REDUCED [None]
